FAERS Safety Report 10185454 (Version 1)
Quarter: 2014Q2

REPORT INFORMATION
  Report Type: Spontaneous
  Country: US (occurrence: US)
  Receive Date: 20140521
  Receipt Date: 20140521
  Transmission Date: 20141212
  Serious: No
  Sender: FDA-Public Use
  Company Number: US-PFIZER INC-2014138084

PATIENT
  Age: 57 Year
  Sex: Male
  Weight: 86.2 kg

DRUGS (5)
  1. CHANTIX [Suspect]
     Indication: SMOKING CESSATION THERAPY
     Dosage: 0.5 MG, ONCE A DAY
     Route: 048
     Dates: start: 20140514, end: 201405
  2. CHANTIX [Suspect]
     Dosage: UNK
     Route: 048
     Dates: start: 201405
  3. PENTASA [Concomitant]
     Indication: CROHN^S DISEASE
     Dosage: UNK
  4. QUESTRAN LIGHT [Concomitant]
     Indication: CROHN^S DISEASE
     Dosage: UNK
  5. DILANTIN [Concomitant]
     Indication: CONVULSION
     Dosage: UNK

REACTIONS (1)
  - Muscle spasms [Unknown]
